FAERS Safety Report 10210553 (Version 2)
Quarter: 2014Q3

REPORT INFORMATION
  Report Type: Spontaneous
  Country: CO (occurrence: CO)
  Receive Date: 20140602
  Receipt Date: 20140701
  Transmission Date: 20150326
  Serious: Yes (Death, Other)
  Sender: FDA-Public Use
  Company Number: CO-MPIJNJ-2014JNJ003599

PATIENT

DRUGS (1)
  1. VELCADE [Suspect]
     Active Substance: BORTEZOMIB
     Indication: PLASMA CELL MYELOMA
     Dosage: 2.2 MG, CYCLIC
     Route: 065
     Dates: start: 20140121, end: 20140403

REACTIONS (3)
  - Multi-organ failure [Fatal]
  - Amnesia [Fatal]
  - Plasma cell myeloma recurrent [Fatal]

NARRATIVE: CASE EVENT DATE: 20140403
